FAERS Safety Report 6387299-X (Version None)
Quarter: 2009Q4

REPORT INFORMATION
  Report Type: 
  Country: None (occurrence: None)
  Receive Date: 20091002
  Receipt Date: 20090924
  Transmission Date: 20100525
  Serious: Yes (Other)
  Sender: FDA-Public Use
  Company Number: US-MERCK-0906USA02849

PATIENT
  Age: 69 Year
  Sex: Female
  Weight: 60 kg

DRUGS (6)
  1. FOSAMAX [Suspect]
     Indication: OSTEOPOROSIS
     Route: 048
     Dates: start: 20030701, end: 20051201
  2. FOSAMAX [Suspect]
     Route: 048
  3. FOSAMAX [Suspect]
     Indication: OSTEOPENIA
     Route: 048
     Dates: start: 20030701, end: 20051201
  4. FOSAMAX [Suspect]
     Route: 048
  5. FOSAMAX PLUS D [Suspect]
     Indication: OSTEOPOROSIS
     Route: 048
     Dates: start: 20060101, end: 20070702
  6. ZITHROMAX [Concomitant]
     Route: 065

REACTIONS (52)
  - ABDOMINAL DISCOMFORT [None]
  - ADVERSE DRUG REACTION [None]
  - ANAEMIA [None]
  - ANXIETY [None]
  - APHTHOUS STOMATITIS [None]
  - ARTHRITIS [None]
  - ASTHMA [None]
  - BONE DISORDER [None]
  - CHRONIC OBSTRUCTIVE PULMONARY DISEASE [None]
  - CONJUNCTIVITIS [None]
  - CONSTIPATION [None]
  - DEAFNESS NEUROSENSORY [None]
  - DRY MOUTH [None]
  - DYSPLASIA [None]
  - ECCHYMOSIS [None]
  - ECONOMIC PROBLEM [None]
  - EMOTIONAL DISTRESS [None]
  - EMPHYSEMA [None]
  - EXOSTOSIS [None]
  - FALL [None]
  - FISTULA [None]
  - GINGIVAL INFECTION [None]
  - GINGIVAL RECESSION [None]
  - HERPES SIMPLEX [None]
  - HIATUS HERNIA [None]
  - HYPERKERATOSIS [None]
  - HYPERTENSION [None]
  - IMPAIRED HEALING [None]
  - JAW DISORDER [None]
  - LEUKOPLAKIA [None]
  - LUMBAR SPINAL STENOSIS [None]
  - MAJOR DEPRESSION [None]
  - MUCOSAL INFLAMMATION [None]
  - NEURITIS [None]
  - NEUROPATHY PERIPHERAL [None]
  - ORAL LICHEN PLANUS [None]
  - ORAL MUCOSA EROSION [None]
  - ORAL TORUS [None]
  - OSTEOMYELITIS [None]
  - OSTEONECROSIS [None]
  - OSTEOPENIA [None]
  - OSTEORADIONECROSIS [None]
  - PERIODONTAL DISEASE [None]
  - PNEUMONIA [None]
  - QUALITY OF LIFE DECREASED [None]
  - RHINITIS ALLERGIC [None]
  - ROTATOR CUFF SYNDROME [None]
  - TOOTH LOSS [None]
  - ULCER [None]
  - UPPER RESPIRATORY TRACT INFECTION [None]
  - URINARY INCONTINENCE [None]
  - WEIGHT DECREASED [None]
